FAERS Safety Report 23507702 (Version 1)
Quarter: 2024Q1

REPORT INFORMATION
  Report Type: Spontaneous
  Country: GB (occurrence: GB)
  Receive Date: 20240209
  Receipt Date: 20240209
  Transmission Date: 20240410
  Serious: Yes (Other)
  Sender: FDA-Public Use
  Company Number: None

PATIENT
  Age: 63 Year
  Sex: Female
  Weight: 70 kg

DRUGS (5)
  1. AMLODIPINE [Suspect]
     Active Substance: AMLODIPINE BESYLATE
     Indication: Ill-defined disorder
     Dosage: TAKE ONE TABLET ONCE A DAY.
     Route: 065
     Dates: start: 20240130, end: 20240201
  2. AMLODIPINE [Suspect]
     Active Substance: AMLODIPINE BESYLATE
     Indication: Ill-defined disorder
     Route: 065
     Dates: start: 20240205
  3. LANSOPRAZOLE [Concomitant]
     Active Substance: LANSOPRAZOLE
     Indication: Ill-defined disorder
     Dosage: TAKE ONE CAPSULE ONCE A DAY.
     Route: 065
     Dates: start: 20230822
  4. RAMIPRIL [Concomitant]
     Active Substance: RAMIPRIL
     Indication: Ill-defined disorder
     Dosage: TAKE ONE CAPSULE ONCE A DAY.
     Route: 065
     Dates: start: 20240201
  5. CLONIDINE [Concomitant]
     Active Substance: CLONIDINE
     Indication: Ill-defined disorder
     Dosage: TIME INTERVAL: 0.33333333 DAYS: TAKE ONE TABLET THREE TIMES A DAY
     Route: 065
     Dates: start: 20240108

REACTIONS (1)
  - Headache [Recovered/Resolved]

NARRATIVE: CASE EVENT DATE: 20240205
